FAERS Safety Report 6614611-6 (Version None)
Quarter: 2010Q1

REPORT INFORMATION
  Report Type: 
  Country: None (occurrence: None)
  Receive Date: 20100226
  Receipt Date: 20100219
  Transmission Date: 20100710
  Serious: Yes (Hospitalization)
  Sender: FDA-Public Use
  Company Number: ACO_00645_2010

PATIENT
  Sex: Male

DRUGS (7)
  1. ZANAFLEX [Suspect]
     Indication: MUSCLE SPASMS
     Dosage: 4 MG QID ORAL
     Route: 048
     Dates: start: 20080101, end: 20100201
  2. ZANAFLEX [Suspect]
     Indication: PAIN
     Dosage: 4 MG QID ORAL
     Route: 048
     Dates: start: 20080101, end: 20100201
  3. ZANAFLEX [Suspect]
     Indication: MUSCLE SPASMS
     Dosage: DF ORAL
     Route: 048
     Dates: start: 20100201
  4. ZANAFLEX [Suspect]
     Indication: PAIN
     Dosage: DF ORAL
     Route: 048
     Dates: start: 20100201
  5. HYDROCODONE [Suspect]
     Indication: MUSCLE SPASMS
     Dosage: DF ORAL
     Route: 048
  6. HYDROCODONE [Suspect]
     Indication: PAIN
     Dosage: DF ORAL
     Route: 048
  7. INSULIN [Concomitant]

REACTIONS (2)
  - DEPENDENCE [None]
  - DIABETIC KETOACIDOSIS [None]
